FAERS Safety Report 9632648 (Version 4)
Quarter: 2014Q1

REPORT INFORMATION
  Report Type: Report from Study
  Country: FR (occurrence: FR)
  Receive Date: 20131018
  Receipt Date: 20140326
  Transmission Date: 20141002
  Serious: Yes (Hospitalization)
  Sender: FDA-Public Use
  Company Number: PHHY2013FR115150

PATIENT
  Age: 52 Year
  Sex: Male
  Weight: 69 kg

DRUGS (2)
  1. AMN107 [Suspect]
     Indication: CHRONIC MYELOID LEUKAEMIA
     Dosage: 800 MG, DAILY
     Route: 048
     Dates: start: 20130110
  2. AMN107 [Suspect]
     Dosage: 600 UNK, DAILY
     Route: 048
     Dates: start: 20130405, end: 20130418

REACTIONS (5)
  - Toxic nodular goitre [Recovering/Resolving]
  - Hyperthyroidism [Not Recovered/Not Resolved]
  - Thyroid neoplasm [Recovering/Resolving]
  - Second primary malignancy [Recovering/Resolving]
  - Papillary thyroid cancer [Recovering/Resolving]
